FAERS Safety Report 8011090-1 (Version None)
Quarter: 2011Q4

REPORT INFORMATION
  Report Type: 
  Country: None (occurrence: None)
  Receive Date: 20111228
  Receipt Date: 20111214
  Transmission Date: 20120403
  Serious: Yes (Hospitalization)
  Sender: FDA-Public Use
  Company Number: DE-ROCHE-1019667

PATIENT
  Sex: Female
  Weight: 43 kg

DRUGS (5)
  1. DOXORUBICIN HCL [Suspect]
     Indication: DIFFUSE LARGE B-CELL LYMPHOMA
     Dosage: LAST DOSE PRIOR TO EVENT: 15-NOV-2011
     Route: 042
     Dates: start: 20110920, end: 20111207
  2. MABTHERA [Suspect]
     Indication: DIFFUSE LARGE B-CELL LYMPHOMA
     Dosage: LAST DOSE PRIOR TO EVENT: 14-NOV-2011
     Route: 042
     Dates: start: 20110919
  3. CYCLOPHOSPHAMIDE [Suspect]
     Indication: DIFFUSE LARGE B-CELL LYMPHOMA
     Dosage: LAST DOSE PRIOR TO EVENT: 15-NOV-2011
     Route: 042
     Dates: start: 20110920
  4. VINCRISTINE [Suspect]
     Indication: DIFFUSE LARGE B-CELL LYMPHOMA
     Dosage: LAST DOSE PRIOR TO EVENT: 15-NOV-2011
     Route: 042
     Dates: start: 20110920
  5. DOXORUBICIN HCL [Suspect]
     Dosage: 50% DOSE REDUCTION
     Route: 042
     Dates: start: 20111207

REACTIONS (3)
  - PALMAR-PLANTAR ERYTHRODYSAESTHESIA SYNDROME [None]
  - MALNUTRITION [None]
  - ORAL CANDIDIASIS [None]
